FAERS Safety Report 7126526-8 (Version None)
Quarter: 2010Q4

REPORT INFORMATION
  Report Type: 
  Country: None (occurrence: None)
  Receive Date: 20101129
  Receipt Date: 20101119
  Transmission Date: 20110411
  Serious: Yes (Death, Hospitalization)
  Sender: FDA-Public Use
  Company Number: FR-CEPHALON-2010006153

PATIENT
  Sex: Male

DRUGS (1)
  1. TREANDA [Suspect]
     Indication: MULTIPLE MYELOMA
     Route: 042
     Dates: start: 20081119

REACTIONS (4)
  - DEATH [None]
  - NEUTROPENIA [None]
  - PNEUMONIA PNEUMOCOCCAL [None]
  - THROMBOCYTOPENIA [None]
